FAERS Safety Report 26166020 (Version 1)
Quarter: 2025Q4

REPORT INFORMATION
  Report Type: Report from Study
  Country: US (occurrence: US)
  Receive Date: 20251216
  Receipt Date: 20251216
  Transmission Date: 20260117
  Serious: Yes (Hospitalization)
  Sender: ABBVIE
  Company Number: US-ABBVIE-6575920

PATIENT
  Age: 52 Year
  Sex: Male
  Weight: 72.5 kg

DRUGS (4)
  1. VYALEV [Suspect]
     Active Substance: FOSCARBIDOPA\FOSLEVODOPA
     Indication: Parkinson^s disease
     Dosage: FREQUENCY TEXT: CONTINUOUS 24-HOUR INFUSION
     Route: 058
     Dates: start: 20241219
  2. MIRALAX [Concomitant]
     Active Substance: POLYETHYLENE GLYCOL 3350
     Indication: Constipation
  3. TIZANIDINE [Concomitant]
     Active Substance: TIZANIDINE
     Indication: Dystonia
  4. BACLOFEN [Concomitant]
     Active Substance: BACLOFEN
     Indication: Muscle spasms

REACTIONS (3)
  - Adverse event [Unknown]
  - Muscle spasms [Unknown]
  - Device kink [Unknown]

NARRATIVE: CASE EVENT DATE: 20250101
